FAERS Safety Report 16116873 (Version 1)
Quarter: 2019Q1

REPORT INFORMATION
  Report Type: Other
  Country: DE (occurrence: DE)
  Receive Date: 20190326
  Receipt Date: 20190326
  Transmission Date: 20190418
  Serious: Yes (Hospitalization, Other)
  Sender: FDA-Public Use
  Company Number: DE-APOTEX-2019AP010015

PATIENT
  Age: 49 Year
  Sex: Female
  Weight: 107 kg

DRUGS (3)
  1. TAZOBACTAM [Suspect]
     Active Substance: TAZOBACTAM
     Indication: UROSEPSIS
     Dosage: 4.5 G, TID
     Route: 065
     Dates: start: 20180206, end: 20180211
  2. MIDOSTAURIN [Suspect]
     Active Substance: MIDOSTAURIN
     Indication: ACUTE MYELOID LEUKAEMIA
     Dosage: 100 MG, QD
     Route: 048
     Dates: start: 20180110, end: 20180110
  3. PANTOPRAZOLE [Suspect]
     Active Substance: PANTOPRAZOLE
     Indication: GASTRITIS
     Dosage: 80 MG, BID
     Route: 048
     Dates: start: 20180209, end: 20180212

REACTIONS (2)
  - Urosepsis [Recovered/Resolved]
  - Transaminases increased [Not Recovered/Not Resolved]

NARRATIVE: CASE EVENT DATE: 20180206
